FAERS Safety Report 16064213 (Version 2)
Quarter: 2022Q3

REPORT INFORMATION
  Report Type: Report from Study
  Country: FR (occurrence: FR)
  Receive Date: 20190312
  Receipt Date: 20220805
  Transmission Date: 20221026
  Serious: Yes (Other)
  Sender: FDA-Public Use
  Company Number: PHHO2019FR002763

PATIENT
  Age: 58 Year
  Sex: Female
  Weight: 73 kg

DRUGS (4)
  1. NILOTINIB [Suspect]
     Active Substance: NILOTINIB
     Indication: Chronic myeloid leukaemia
     Dosage: 300 MG, BID
     Route: 048
     Dates: start: 20160629, end: 20170627
  2. NILOTINIB [Suspect]
     Active Substance: NILOTINIB
     Dosage: 450 MG, BID
     Route: 048
     Dates: start: 20170628, end: 20171007
  3. NILOTINIB [Suspect]
     Active Substance: NILOTINIB
     Dosage: 300 MG, BID
     Route: 048
     Dates: start: 20171018, end: 201811
  4. NILOTINIB [Suspect]
     Active Substance: NILOTINIB
     Dosage: 50 MG, QD
     Route: 048
     Dates: start: 20181102, end: 20190201

REACTIONS (3)
  - Cognitive disorder [Recovered/Resolved with Sequelae]
  - Condition aggravated [Recovered/Resolved with Sequelae]
  - Dementia Alzheimer^s type [Not Recovered/Not Resolved]

NARRATIVE: CASE EVENT DATE: 20161230
